FAERS Safety Report 4468338-X (Version None)
Quarter: 2004Q4

REPORT INFORMATION
  Report Type: 
  Country: None (occurrence: None)
  Receive Date: 20041006
  Receipt Date: 20040930
  Transmission Date: 20050328
  Serious: Yes (Hospitalization, Other)
  Sender: FDA-Public Use
  Company Number: 04-09-1370

PATIENT
  Age: 76 Year
  Sex: Female

DRUGS (6)
  1. TRAMADOL HCL [Suspect]
     Indication: ANALGESIC EFFECT
     Dosage: 50MG QID ORAL
     Route: 048
  2. PERINDOPRIL [Concomitant]
  3. RANITIDINE [Concomitant]
  4. RISENDRONATE [Concomitant]
  5. QUININE SULFATE [Concomitant]
  6. CALCIUM CARBONATE [Concomitant]

REACTIONS (1)
  - INAPPROPRIATE ANTIDIURETIC HORMONE SECRETION [None]
